FAERS Safety Report 9002705 (Version 1)
Quarter: 2013Q1

REPORT INFORMATION
  Report Type: Spontaneous
  Country: US (occurrence: US)
  Receive Date: 20130107
  Receipt Date: 20130107
  Transmission Date: 20140127
  Serious: Yes (Other)
  Sender: FDA-Public Use
  Company Number: US-GLAXOSMITHKLINE-A0980847A

PATIENT
  Age: 51 Year
  Sex: Female
  Weight: 79.9 kg

DRUGS (26)
  1. BENLYSTA [Suspect]
     Indication: SYSTEMIC LUPUS ERYTHEMATOSUS
     Route: 042
     Dates: start: 20120131, end: 20120327
  2. ARAVA [Concomitant]
  3. PLAQUENIL [Concomitant]
     Dosage: 400MG PER DAY
  4. MEDROL [Concomitant]
     Dosage: 6MG PER DAY
  5. SYNTHROID [Concomitant]
  6. LISINOPRIL [Concomitant]
     Dosage: 10MG PER DAY
  7. LASIX [Concomitant]
     Dosage: 20MG PER DAY
  8. PROCARDIA XL [Concomitant]
  9. POTASSIUM CHLORIDE [Concomitant]
     Dosage: 10MG PER DAY
  10. PRILOSEC [Concomitant]
     Dosage: 40MG PER DAY
  11. ZANTAC [Concomitant]
     Dosage: 300MG PER DAY
  12. EVOXAC [Concomitant]
     Dosage: 30MG PER DAY
  13. IMODIUM [Concomitant]
     Dosage: 2MG PER DAY
  14. CITRUCEL [Concomitant]
  15. ESTRING [Concomitant]
  16. AMBIEN CR [Concomitant]
     Indication: INSOMNIA
  17. GABAPENTIN [Concomitant]
     Dosage: 300MG PER DAY
  18. VOLTAREN [Concomitant]
  19. LORATADINE [Concomitant]
     Dosage: 10MG PER DAY
  20. VITAMIN D [Concomitant]
     Dosage: 1000IU PER DAY
  21. REQUIP [Concomitant]
  22. ZOLOFT [Concomitant]
     Dosage: 100MG PER DAY
  23. ATIVAN [Concomitant]
  24. MULTIVITAMIN [Concomitant]
  25. XANAX [Concomitant]
  26. ENBREL [Concomitant]

REACTIONS (3)
  - Systemic lupus erythematosus [Unknown]
  - Hypoaesthesia [Recovered/Resolved]
  - Paraesthesia [Recovered/Resolved]
